FAERS Safety Report 9358996 (Version 1)
Quarter: 2013Q2

REPORT INFORMATION
  Report Type: Spontaneous
  Country: US (occurrence: US)
  Receive Date: 20130620
  Receipt Date: 20130620
  Transmission Date: 20140414
  Serious: Yes (Death, Other)
  Sender: FDA-Public Use
  Company Number: US-ASTRAZENECA-2013SE46967

PATIENT
  Age: 72 Year
  Sex: Female
  Weight: 60.3 kg

DRUGS (16)
  1. BRILINTA [Suspect]
     Indication: ADVERSE DRUG REACTION
     Route: 048
     Dates: start: 20130520
  2. ASPIRIN [Suspect]
     Indication: CARDIAC DISORDER
     Route: 065
  3. CALCIUM [Concomitant]
     Indication: BLOOD CALCIUM DECREASED
  4. COMPLETE MULTIVITAMIN WITH MINERALS [Concomitant]
  5. IRON [Concomitant]
     Indication: BLOOD IRON DECREASED
  6. CITALOPRAN [Concomitant]
  7. LEVOTHYROXINE [Concomitant]
     Indication: HYPOTHYROIDISM
  8. COREG [Concomitant]
     Dosage: 3.125 DAILY
  9. LASIX [Concomitant]
  10. VITAMIN B-12 [Concomitant]
     Indication: VITAMIN B12 DECREASED
     Dosage: DAILY
  11. VITAMIN B-12 [Concomitant]
     Indication: VITAMIN B12 DECREASED
     Dosage: MONTHLY
     Dates: start: 201305
  12. SIMVASTATIN [Concomitant]
  13. AMITRIPTYLIN [Concomitant]
  14. ZOLPIDEM [Concomitant]
  15. FOSAMAX [Concomitant]
     Dosage: UNKNOWN, WEEK
  16. TYLENOL [Concomitant]
     Indication: ARTHRITIS

REACTIONS (14)
  - Fall [Fatal]
  - Cerebral haemorrhage [Fatal]
  - Nervous system disorder [Fatal]
  - Gait disturbance [Unknown]
  - Loss of consciousness [Unknown]
  - Cerebrovascular accident [Unknown]
  - Unresponsive to stimuli [Unknown]
  - Muscular weakness [Unknown]
  - Dyspnoea [Unknown]
  - Headache [Unknown]
  - Dizziness [Unknown]
  - Confusional state [Unknown]
  - Nausea [Unknown]
  - Intentional drug misuse [Unknown]
